FAERS Safety Report 17755752 (Version 1)
Quarter: 2020Q2

REPORT INFORMATION
  Report Type: Spontaneous
  Country: US (occurrence: US)
  Receive Date: 20200506
  Receipt Date: 20200506
  Transmission Date: 20200714
  Serious: Yes (Other)
  Sender: FDA-Public Use
  Company Number: None

PATIENT
  Age: 45 Year
  Sex: Female
  Weight: 127.57 kg

DRUGS (10)
  1. COPAXONE [Suspect]
     Active Substance: GLATIRAMER ACETATE
     Indication: MULTIPLE SCLEROSIS
     Dosage: ?          OTHER FREQUENCY:3 TIMES PER WEEK;OTHER ROUTE:INJECTION INTO ARMS, HIPS, THIGHS OR STO?
     Dates: start: 20180420, end: 20200427
  2. SINGULAIR [Concomitant]
     Active Substance: MONTELUKAST SODIUM
  3. CBD [Concomitant]
     Active Substance: CANNABIDIOL
  4. VITAMIN D [Concomitant]
     Active Substance: VITAMIN D NOS
  5. CYMBALTA [Concomitant]
     Active Substance: DULOXETINE HYDROCHLORIDE
  6. TOPIRAMATE. [Concomitant]
     Active Substance: TOPIRAMATE
  7. CRANBERRY. [Concomitant]
     Active Substance: CRANBERRY
  8. VITAMIN B [Concomitant]
     Active Substance: VITAMIN B
  9. ZYRTEC [Concomitant]
     Active Substance: CETIRIZINE HYDROCHLORIDE
  10. TIZANIDINE. [Concomitant]
     Active Substance: TIZANIDINE

REACTIONS (7)
  - Chills [None]
  - Tremor [None]
  - Pain [None]
  - Dyspnoea [None]
  - Nasopharyngitis [None]
  - Influenza like illness [None]
  - Injection related reaction [None]

NARRATIVE: CASE EVENT DATE: 20200427
